FAERS Safety Report 15682564 (Version 9)
Quarter: 2023Q4

REPORT INFORMATION
  Report Type: Report from Study
  Country: JP (occurrence: JP)
  Receive Date: 20181203
  Receipt Date: 20231222
  Transmission Date: 20240110
  Serious: Yes (Life-Threatening, Other)
  Sender: FDA-Public Use
  Company Number: JP-JT-EVA201803514GILEAD-001

PATIENT
  Age: 28 Year
  Sex: Female

DRUGS (6)
  1. EMTRICITABINE\TENOFOVIR [Suspect]
     Active Substance: EMTRICITABINE\TENOFOVIR
     Indication: HIV infection
     Dosage: 1 DOSAGE FORM, QD
     Route: 048
     Dates: start: 20171101
  2. ISENTRESS [Suspect]
     Active Substance: RALTEGRAVIR POTASSIUM
     Indication: HIV infection
     Dosage: 400 MG, BID
     Route: 048
     Dates: start: 20171101, end: 20180821
  3. MYCOBUTIN [Suspect]
     Active Substance: RIFABUTIN
     Indication: Opportunistic infection prophylaxis
     Dosage: 300 MG, QD
     Route: 048
     Dates: start: 20171004, end: 20180525
  4. ISENTRESS [Concomitant]
     Active Substance: RALTEGRAVIR POTASSIUM
     Indication: HIV infection
     Dosage: 1200 MG
     Route: 048
     Dates: start: 20180822
  5. LANSOPRAZOLE [Concomitant]
     Active Substance: LANSOPRAZOLE
     Indication: Chronic gastritis
     Dosage: 15 MG, QD
     Route: 048
     Dates: start: 20170925
  6. ATOVAQUONE [Concomitant]
     Active Substance: ATOVAQUONE
     Indication: Pneumocystis jirovecii pneumonia
     Dosage: 750 MG, QD
     Route: 048
     Dates: start: 20171002, end: 20190226

REACTIONS (6)
  - Autoimmune haemolytic anaemia [Recovered/Resolved]
  - Autoimmune hepatitis [Not Recovered/Not Resolved]
  - Upper respiratory tract inflammation [Recovered/Resolved]
  - Autoimmune thyroiditis [Recovered/Resolved]
  - Graves^ disease [Not Recovered/Not Resolved]
  - Tachycardia [Recovered/Resolved]

NARRATIVE: CASE EVENT DATE: 20180516
